FAERS Safety Report 9321327 (Version 1)
Quarter: 2013Q2

REPORT INFORMATION
  Report Type: Spontaneous
  Country: IT (occurrence: None)
  Receive Date: 20130528
  Receipt Date: 20130528
  Transmission Date: 20140414
  Serious: Yes (Death, Other)
  Sender: FDA-Public Use
  Company Number: 2013P1996128

PATIENT
  Age: 33 Year
  Sex: Male

DRUGS (6)
  1. MORPHINE [Suspect]
     Route: 042
     Dates: end: 201012
  2. DEXTROMETHORPHAN [Suspect]
     Dosage: IV
  3. ACETYLCODEINE [Suspect]
     Dosage: IV
     Dates: end: 201212
  4. 6-MAM [Suspect]
     Dosage: IV
     Dates: end: 201212
  5. HEROIN [Suspect]
     Route: 042
     Dates: end: 201212
  6. CAFFEINE [Suspect]
     Route: 042
     Dates: end: 201212

REACTIONS (3)
  - Drug abuse [None]
  - Respiratory depression [None]
  - Potentiating drug interaction [None]
